FAERS Safety Report 5139950-X (Version None)
Quarter: 2006Q4

REPORT INFORMATION
  Report Type: 
  Country: None (occurrence: None)
  Receive Date: 20061031
  Receipt Date: 20061019
  Transmission Date: 20070319
  Serious: Yes (Other)
  Sender: FDA-Public Use
  Company Number: US-JNJFOC-20061004852

PATIENT
  Age: 53 Year
  Sex: Male
  Weight: 91.17 kg

DRUGS (3)
  1. LEVAQUIN [Suspect]
     Indication: EPIDIDYMITIS
     Route: 048
  2. CYPRO [Concomitant]
     Route: 048
     Dates: start: 20050310, end: 20050320
  3. GENTAMICIN [Concomitant]
     Route: 030

REACTIONS (3)
  - CONVULSION [None]
  - ELECTROENCEPHALOGRAM ABNORMAL [None]
  - ROAD TRAFFIC ACCIDENT [None]
